FAERS Safety Report 6677562-7 (Version None)
Quarter: 2010Q2

REPORT INFORMATION
  Report Type: 
  Country: None (occurrence: None)
  Receive Date: 20100412
  Receipt Date: 20100212
  Transmission Date: 20101027
  Serious: No
  Sender: FDA-Public Use
  Company Number: US-ALEXION-A201000174

PATIENT
  Sex: Male

DRUGS (5)
  1. SOLIRIS [Suspect]
     Indication: PAROXYSMAL NOCTURNAL HAEMOGLOBINURIA
     Dosage: 600 MG, QW
     Route: 042
     Dates: start: 20070613, end: 20070704
  2. SOLIRIS [Suspect]
     Dosage: 900 MG, Q2W
     Route: 042
     Dates: start: 20070711
  3. EXJADE [Concomitant]
     Indication: IRON OVERLOAD
     Dosage: UNK
     Route: 048
  4. PROTONIX                           /01263201/ [Concomitant]
     Indication: GASTROOESOPHAGEAL REFLUX DISEASE
     Dosage: 40 MG, QD
     Route: 048
  5. FOLIC ACID [Concomitant]
     Indication: PAROXYSMAL NOCTURNAL HAEMOGLOBINURIA
     Dosage: 800 UG, QD
     Route: 048

REACTIONS (5)
  - CONDITION AGGRAVATED [None]
  - HAEMOLYSIS [None]
  - NASOPHARYNGITIS [None]
  - NIGHT SWEATS [None]
  - PAROXYSMAL NOCTURNAL HAEMOGLOBINURIA [None]
